FAERS Safety Report 25045659 (Version 4)
Quarter: 2025Q2

REPORT INFORMATION
  Report Type: Report from Study
  Country: US (occurrence: US)
  Receive Date: 20250306
  Receipt Date: 20250618
  Transmission Date: 20250717
  Serious: No
  Sender: ACADIA PHARMACEUTICALS
  Company Number: US-ACADIA PHARMACEUTICALS INC.-ACA-2025-TRF-001994

PATIENT

DRUGS (6)
  1. DAYBUE [Suspect]
     Active Substance: TROFINETIDE
     Indication: Rett syndrome
     Dosage: 25 MILLILITER, BID (G-TUBE)
     Dates: start: 20230401
  2. DAYBUE [Suspect]
     Active Substance: TROFINETIDE
     Dosage: 20 MILLILITER, BID
  3. CLOBAZAM [Concomitant]
     Active Substance: CLOBAZAM
     Dates: start: 2013
  4. CATAPRES-TTS [Concomitant]
     Active Substance: CLONIDINE
     Dates: start: 2016
  5. DIAZEPAM [Concomitant]
     Active Substance: DIAZEPAM
     Dates: start: 2022
  6. LAMICTAL [Concomitant]
     Active Substance: LAMOTRIGINE
     Dates: start: 2011

REACTIONS (3)
  - Gastrointestinal inflammation [Not Recovered/Not Resolved]
  - Faecal calprotectin increased [Recovering/Resolving]
  - Prescribed underdose [Not Recovered/Not Resolved]
